FAERS Safety Report 17556678 (Version 2)
Quarter: 2020Q1

REPORT INFORMATION
  Report Type: Spontaneous
  Country: RU (occurrence: RU)
  Receive Date: 20200318
  Receipt Date: 20200331
  Transmission Date: 20200409
  Serious: Yes (Other)
  Sender: FDA-Public Use
  Company Number: RU-ABBVIE-20K-251-3318289-00

PATIENT
  Age: 78 Year
  Sex: Female

DRUGS (5)
  1. AZACITIDINE. [Concomitant]
     Active Substance: AZACITIDINE
     Indication: ACUTE MYELOID LEUKAEMIA
  2. VENCLEXTA [Suspect]
     Active Substance: VENETOCLAX
     Route: 048
  3. VENCLEXTA [Suspect]
     Active Substance: VENETOCLAX
     Dosage: CYCLE 2
     Route: 048
  4. VENCLEXTA [Suspect]
     Active Substance: VENETOCLAX
     Indication: ACUTE MYELOID LEUKAEMIA
     Dosage: INITIAL DOSE?CYCLE 1
     Route: 048
  5. VENCLEXTA [Suspect]
     Active Substance: VENETOCLAX
     Route: 048

REACTIONS (12)
  - Haemorrhagic disorder [Recovering/Resolving]
  - Pulmonary mycosis [Recovered/Resolved]
  - Renal disorder [Recovered/Resolved]
  - Cystitis haemorrhagic [Recovered/Resolved]
  - Pneumonia fungal [Recovered/Resolved]
  - Pneumonia bacterial [Recovered/Resolved]
  - Pancytopenia [Recovered/Resolved]
  - Escherichia sepsis [Recovered/Resolved]
  - Febrile neutropenia [Recovered/Resolved]
  - Soft tissue infection [Recovered/Resolved]
  - Urinary tract infection [Recovered/Resolved]
  - Acid base balance abnormal [Recovered/Resolved]
